FAERS Safety Report 22177886 (Version 1)
Quarter: 2023Q2

REPORT INFORMATION
  Report Type: Spontaneous
  Country: AU (occurrence: None)
  Receive Date: 20230405
  Receipt Date: 20230405
  Transmission Date: 20230721
  Serious: Yes (Other)
  Sender: FDA-Public Use
  Company Number: 2023A072962

PATIENT
  Age: 74 Year
  Sex: Male

DRUGS (10)
  1. ACALABRUTINIB [Suspect]
     Active Substance: ACALABRUTINIB
     Route: 048
  2. IMBRUVICA [Suspect]
     Active Substance: IBRUTINIB
  3. BENDAMUSTINE HYDROCHLORIDE [Suspect]
     Active Substance: BENDAMUSTINE HYDROCHLORIDE
  4. CISPLATIN [Suspect]
     Active Substance: CISPLATIN
  5. CYTARABINE [Suspect]
     Active Substance: CYTARABINE
  6. DEXAMETHASONE [Suspect]
     Active Substance: DEXAMETHASONE
  7. OXALIPLATIN [Suspect]
     Active Substance: OXALIPLATIN
  8. BENDAMUSTINE [Suspect]
     Active Substance: BENDAMUSTINE
  9. RITUXIMAB [Suspect]
     Active Substance: RITUXIMAB
  10. CYTARABINE [Suspect]
     Active Substance: CYTARABINE

REACTIONS (4)
  - Bone marrow failure [Unknown]
  - Mantle cell lymphoma [Unknown]
  - Off label use [Unknown]
  - Treatment failure [Unknown]
